FAERS Safety Report 5223957-8 (Version None)
Quarter: 2007Q1

REPORT INFORMATION
  Report Type: 
  Country: None (occurrence: None)
  Receive Date: 20070130
  Receipt Date: 20070128
  Transmission Date: 20070707
  Serious: Yes (Other)
  Sender: FDA-Public Use
  Company Number: US-GLAXOSMITHKLINE-A0637188A

PATIENT
  Age: 76 Year
  Sex: Female

DRUGS (3)
  1. SEREVENT [Suspect]
     Indication: ASTHMA
     Dosage: 1PUFF TWICE PER DAY
     Route: 055
  2. FLOVENT [Concomitant]
     Indication: DRUG USE FOR UNKNOWN INDICATION
     Route: 055
  3. ALBUTEROL [Concomitant]

REACTIONS (5)
  - BRONCHOSPASM [None]
  - CHOKING [None]
  - COUGH [None]
  - DYSPNOEA [None]
  - EXPIRED DRUG ADMINISTERED [None]
